FAERS Safety Report 9510610 (Version 2)
Quarter: 2013Q3

REPORT INFORMATION
  Report Type: Spontaneous
  Country: US (occurrence: US)
  Receive Date: 20130909
  Receipt Date: 20130909
  Transmission Date: 20140515
  Serious: Yes (Death, Hospitalization, Other)
  Sender: FDA-Public Use
  Company Number: US-ACTAVIS-2013-14605

PATIENT
  Age: 15 Year
  Sex: Male

DRUGS (10)
  1. SODIUM VALPROATE (UNKNOWN) [Suspect]
     Indication: SIMPLE PARTIAL SEIZURES
     Dosage: 45 MG/KG, DAILY
     Route: 065
  2. SODIUM VALPROATE (UNKNOWN) [Suspect]
     Indication: COMPLEX PARTIAL SEIZURES
  3. SODIUM VALPROATE (UNKNOWN) [Suspect]
     Indication: GRAND MAL CONVULSION
  4. SODIUM VALPROATE (UNKNOWN) [Suspect]
     Indication: ATONIC SEIZURES
  5. SODIUM VALPROATE (UNKNOWN) [Suspect]
     Indication: PETIT MAL EPILEPSY
  6. CARBAMAZEPINE [Concomitant]
     Indication: SIMPLE PARTIAL SEIZURES
     Dosage: 15 MG/KG, DAILY
     Route: 065
  7. CARBAMAZEPINE [Concomitant]
     Indication: COMPLEX PARTIAL SEIZURES
  8. CARBAMAZEPINE [Concomitant]
     Indication: GRAND MAL CONVULSION
  9. CARBAMAZEPINE [Concomitant]
     Indication: ATONIC SEIZURES
  10. CARBAMAZEPINE [Concomitant]
     Indication: PETIT MAL EPILEPSY

REACTIONS (3)
  - Pancreatitis haemorrhagic [Fatal]
  - Cerebellar infarction [Fatal]
  - Transaminases increased [Unknown]
